FAERS Safety Report 4564194-X (Version None)
Quarter: 2005Q1

REPORT INFORMATION
  Report Type: 
  Country: None (occurrence: None)
  Receive Date: 20050126
  Receipt Date: 20050112
  Transmission Date: 20050727
  Serious: Yes (Death, Hospitalization)
  Sender: FDA-Public Use
  Company Number: 2005BI000743

PATIENT
  Age: 66 Year
  Sex: Female

DRUGS (3)
  1. ZEVALIN [Suspect]
     Indication: NON-HODGKIN'S LYMPHOMA
     Dosage: 1X; IV
     Route: 042
     Dates: start: 20030101, end: 20030101
  2. ETOPOSIDE [Concomitant]
  3. CYCLOPHOSPHAMIDE [Concomitant]

REACTIONS (11)
  - APHASIA [None]
  - CONFUSIONAL STATE [None]
  - DYSPHAGIA [None]
  - ENCEPHALITIS [None]
  - NEUTROPENIA [None]
  - PARALYSIS FLACCID [None]
  - POST PROCEDURAL COMPLICATION [None]
  - RESPIRATORY DISTRESS [None]
  - THERAPY NON-RESPONDER [None]
  - TREMOR [None]
  - WEST NILE VIRAL INFECTION [None]
